FAERS Safety Report 10710209 (Version 1)
Quarter: 2015Q1

REPORT INFORMATION
  Report Type: Spontaneous
  Country: JP (occurrence: None)
  Receive Date: 20150112
  Receipt Date: 20150112
  Transmission Date: 20150721
  Serious: Yes (Hospitalization)
  Sender: FDA-Public Use
  Company Number: ABR_01922_2015

PATIENT
  Age: 64 Year
  Sex: Male

DRUGS (6)
  1. GLIADEL [Suspect]
     Active Substance: CARMUSTINE
     Indication: MALIGNANT GLIOMA
     Dosage: UNK INTRACEREBRAL)
     Dates: start: 20140210, end: 20140908
  2. NICARDIPINE HYDROCHLORIDE. [Concomitant]
     Active Substance: NICARDIPINE HYDROCHLORIDE
  3. CARBAMAZEPINE. [Concomitant]
     Active Substance: CARBAMAZEPINE
  4. CEFAZOLIN SODIUM. [Concomitant]
     Active Substance: CEFAZOLIN SODIUM
  5. FOSPHENYTOIN SODIUM. [Concomitant]
     Active Substance: FOSPHENYTOIN SODIUM
  6. TERPERAN [Concomitant]
     Active Substance: METOCLOPRAMIDE HYDROCHLORIDE

REACTIONS (7)
  - Platelet count decreased [None]
  - Pneumocephalus [None]
  - Brain oedema [None]
  - Hepatic function abnormal [None]
  - Post procedural complication [None]
  - Lymphocyte count decreased [None]
  - Condition aggravated [None]

NARRATIVE: CASE EVENT DATE: 20140627
